FAERS Safety Report 5680096-X (Version None)
Quarter: 2008Q1

REPORT INFORMATION
  Report Type: 
  Country: None (occurrence: None)
  Receive Date: 20080326
  Receipt Date: 20080317
  Transmission Date: 20080703
  Serious: Yes (Other)
  Sender: FDA-Public Use
  Company Number: US-BAYER-200817103NA

PATIENT
  Age: 20 Year
  Sex: Male

DRUGS (2)
  1. CIPRO [Suspect]
     Indication: SINUSITIS
     Route: 048
     Dates: start: 20080301
  2. ADVIL [Suspect]

REACTIONS (1)
  - CONVULSION [None]
